FAERS Safety Report 5117954-0 (Version None)
Quarter: 2006Q3

REPORT INFORMATION
  Report Type: 
  Country: None (occurrence: None)
  Receive Date: 20060926
  Receipt Date: 20060913
  Transmission Date: 20061208
  Serious: Yes (Death, Hospitalization)
  Sender: FDA-Public Use
  Company Number: 2004120959

PATIENT
  Age: 67 Year
  Sex: Female
  Weight: 37 kg

DRUGS (9)
  1. IRINOTECAN HCL [Suspect]
     Indication: OVARIAN CANCER
     Dosage: SEE IMAGE
     Route: 042
     Dates: start: 20040316, end: 20040327
  2. IRINOTECAN HCL [Suspect]
     Indication: OVARIAN CANCER
     Dosage: SEE IMAGE
     Route: 042
     Dates: start: 20040407, end: 20040414
  3. IRINOTECAN HCL [Suspect]
     Indication: OVARIAN CANCER
     Dosage: SEE IMAGE
     Route: 042
     Dates: start: 20040426, end: 20040426
  4. NEUPOGEN [Suspect]
     Indication: OVARIAN CANCER
     Dosage: 75 MCG, INTRAVENOUS
     Route: 042
     Dates: start: 20040327, end: 20040331
  5. NEUPOGEN [Suspect]
     Indication: OVARIAN CANCER
     Dosage: 75 MCG, INTRAVENOUS
     Route: 042
     Dates: start: 20040408, end: 20040418
  6. NEUPOGEN [Suspect]
     Indication: OVARIAN CANCER
     Dosage: 75 MCG, INTRAVENOUS
     Route: 042
     Dates: start: 20040422, end: 20040423
  7. ETOPOSIDE [Suspect]
     Indication: OVARIAN CANCER
     Dosage: SEE IMAGE
     Route: 048
     Dates: start: 20040722, end: 20040809
  8. ETOPOSIDE [Suspect]
     Indication: OVARIAN CANCER
     Dosage: SEE IMAGE
     Route: 048
     Dates: start: 20040816, end: 20050207
  9. TAXOTERE [Concomitant]

REACTIONS (16)
  - ANOREXIA [None]
  - BONE MARROW FAILURE [None]
  - CONDITION AGGRAVATED [None]
  - GENERAL PHYSICAL HEALTH DETERIORATION [None]
  - INFECTION [None]
  - INTERSTITIAL LUNG DISEASE [None]
  - MALAISE [None]
  - MALNUTRITION [None]
  - METASTASES TO SPLEEN [None]
  - NAUSEA [None]
  - NEUTROPENIA [None]
  - OVARIAN CANCER [None]
  - RECURRENT CANCER [None]
  - RENAL IMPAIRMENT [None]
  - RESPIRATORY FAILURE [None]
  - WHITE BLOOD CELL COUNT DECREASED [None]
